FAERS Safety Report 13123403 (Version 2)
Quarter: 2017Q2

REPORT INFORMATION
  Report Type: Spontaneous
  Country: US (occurrence: US)
  Receive Date: 20170117
  Receipt Date: 20170403
  Transmission Date: 20170830
  Serious: Yes (Other)
  Sender: FDA-Public Use
  Company Number: US-SHIRE-US201700204

PATIENT
  Age: 55 Year
  Sex: Female

DRUGS (1)
  1. XIIDRA [Suspect]
     Active Substance: LIFITEGRAST
     Indication: DRY EYE
     Dosage: 1 GTT, 2X/DAY:BID (OS)
     Route: 047
     Dates: start: 20160930, end: 20161011

REACTIONS (4)
  - Ulcerative keratitis [Recovered/Resolved with Sequelae]
  - Corneal epithelium defect [Unknown]
  - Inappropriate schedule of drug administration [Recovered/Resolved]
  - Impaired healing [Unknown]

NARRATIVE: CASE EVENT DATE: 20160930
